FAERS Safety Report 9744885 (Version 3)
Quarter: 2014Q2

REPORT INFORMATION
  Report Type: Spontaneous
  Country: JP (occurrence: JP)
  Receive Date: 20131211
  Receipt Date: 20140627
  Transmission Date: 20141212
  Serious: Yes (Hospitalization, Disabling, Other)
  Sender: FDA-Public Use
  Company Number: JP-AMGEN-JPNSP2013085705

PATIENT
  Age: 61 Year
  Sex: Female

DRUGS (1)
  1. NESP [Suspect]
     Indication: NEPHROGENIC ANAEMIA
     Dosage: 100 MUG, QWK
     Route: 040
     Dates: start: 20100204, end: 20130903

REACTIONS (3)
  - Arteriovenous fistula occlusion [Recovered/Resolved]
  - Pelvic fracture [Recovered/Resolved with Sequelae]
  - Drug ineffective [Recovering/Resolving]
